FAERS Safety Report 6206077-5 (Version None)
Quarter: 2009Q2

REPORT INFORMATION
  Report Type: 
  Country: None (occurrence: None)
  Receive Date: 20090528
  Receipt Date: 20090525
  Transmission Date: 20091009
  Serious: Yes (Life-Threatening)
  Sender: FDA-Public Use
  Company Number: AU-BRISTOL-MYERS SQUIBB COMPANY-14636849

PATIENT
  Age: 74 Year
  Sex: Male

DRUGS (5)
  1. AVAPRO [Suspect]
     Dosage: DOSE WAS REDUCED TO 75MG
     Route: 048
  2. RAMIPRIL [Suspect]
     Dosage: FORM-TABS
     Route: 048
     Dates: start: 20070302
  3. ASPIRIN [Concomitant]
  4. FRUSEMIDE [Concomitant]
     Dosage: FORM TABS; 2 TIMES
     Route: 048
  5. LIPITOR [Concomitant]
     Dosage: FORM-TABS
     Route: 048

REACTIONS (1)
  - HYPERKALAEMIA [None]
